FAERS Safety Report 9807571 (Version 1)
Quarter: 2014Q1

REPORT INFORMATION
  Report Type: Spontaneous
  Country: US (occurrence: US)
  Receive Date: 20140110
  Receipt Date: 20140110
  Transmission Date: 20141002
  Serious: No
  Sender: FDA-Public Use
  Company Number: US-SANOFI-AVENTIS-2013SA040554

PATIENT
  Age: 72 Year
  Sex: Female

DRUGS (3)
  1. PLAVIX [Suspect]
  2. LOVASTATIN [Concomitant]
  3. ATENOLOL [Concomitant]

REACTIONS (1)
  - Local swelling [Recovered/Resolved]
